FAERS Safety Report 16564474 (Version 1)
Quarter: 2019Q3

REPORT INFORMATION
  Report Type: Spontaneous
  Country: US (occurrence: US)
  Receive Date: 20190711
  Receipt Date: 20190711
  Transmission Date: 20191004
  Serious: No
  Sender: FDA-Public Use
  Company Number: None

PATIENT
  Age: 70 Year
  Sex: Male
  Weight: 105.75 kg

DRUGS (13)
  1. EQUATE EYE ALLERGY RELIEF DROPS [Suspect]
     Active Substance: NAPHAZOLINE HYDROCHLORIDE\PHENIRAMINE MALEATE
     Indication: EYE PRURITUS
     Dosage: ?          QUANTITY:1 DROP(S);?
     Route: 047
     Dates: start: 20170501, end: 20190708
  2. ASPIRIN. [Concomitant]
     Active Substance: ASPIRIN
  3. M+E CALCIUM CITRATE [Concomitant]
  4. RANITIDINE. [Concomitant]
     Active Substance: RANITIDINE
  5. PANTOPRAZOLE SOODIUM [Concomitant]
  6. FISH OIL [Concomitant]
     Active Substance: FISH OIL
  7. TAMSULOSIN(FLOWMAX) [Concomitant]
  8. M+E NAPROXIN [Concomitant]
  9. LORATADINE. [Concomitant]
     Active Substance: LORATADINE
  10. EQUATE EYE ALLERGY RELIEF DROPS [Suspect]
     Active Substance: NAPHAZOLINE HYDROCHLORIDE\PHENIRAMINE MALEATE
     Indication: OCULAR HYPERAEMIA
     Dosage: ?          QUANTITY:1 DROP(S);?
     Route: 047
     Dates: start: 20170501, end: 20190708
  11. VITAMIN C [Concomitant]
     Active Substance: ASCORBIC ACID
  12. VITAMIN D3 [Concomitant]
     Active Substance: CHOLECALCIFEROL
  13. MATURE MULTIVITAMN PROBIOTIC [Concomitant]

REACTIONS (2)
  - Eye haemorrhage [None]
  - Vision blurred [None]

NARRATIVE: CASE EVENT DATE: 20190702
